FAERS Safety Report 8452622-9 (Version None)
Quarter: 2012Q2

REPORT INFORMATION
  Report Type: 
  Country: None (occurrence: None)
  Receive Date: 20120620
  Receipt Date: 20120514
  Transmission Date: 20120825
  Serious: No
  Sender: FDA-Public Use
  Company Number: US-VERTEX PHARMACEUTICALS INC.-AE-2012-005702

PATIENT
  Sex: Male
  Weight: 88.53 kg

DRUGS (6)
  1. ZYRTEC [Concomitant]
     Indication: HYPERSENSITIVITY
     Route: 048
  2. INCIVEK [Suspect]
     Indication: HEPATITIS C
     Route: 048
     Dates: start: 20120416
  3. XANAX [Concomitant]
  4. DILAUDID [Concomitant]
  5. RIBAVIRIN [Concomitant]
     Indication: HEPATITIS C
     Route: 048
     Dates: start: 20120416
  6. PEGASYS [Concomitant]
     Indication: HEPATITIS C
     Route: 058
     Dates: start: 20120416

REACTIONS (12)
  - INFLUENZA LIKE ILLNESS [None]
  - INSOMNIA [None]
  - INJECTION SITE ERYTHEMA [None]
  - DYSPNOEA [None]
  - IRRITABILITY [None]
  - CHILLS [None]
  - HYPERHIDROSIS [None]
  - INJECTION SITE RASH [None]
  - HEART RATE INCREASED [None]
  - CONFUSIONAL STATE [None]
  - WEIGHT DECREASED [None]
  - INJECTION SITE PAIN [None]
